FAERS Safety Report 25032334 (Version 1)
Quarter: 2025Q1

REPORT INFORMATION
  Report Type: Spontaneous
  Country: FR (occurrence: FR)
  Receive Date: 20250303
  Receipt Date: 20250303
  Transmission Date: 20250409
  Serious: Yes (Hospitalization, Other)
  Sender: HIKMA
  Company Number: None

PATIENT

DRUGS (10)
  1. CARBOPLATIN [Suspect]
     Active Substance: CARBOPLATIN
     Indication: Lung neoplasm malignant
     Route: 042
     Dates: start: 20250117, end: 20250117
  2. KEYTRUDA [Suspect]
     Active Substance: PEMBROLIZUMAB
     Indication: Lung neoplasm malignant
     Route: 042
     Dates: start: 20250117, end: 20250117
  3. KRAZATI [Suspect]
     Active Substance: ADAGRASIB
     Indication: Lung neoplasm malignant
     Dosage: 200 MILLIGRAM, Q12H
     Route: 048
     Dates: start: 20250124, end: 20250127
  4. KRAZATI [Suspect]
     Active Substance: ADAGRASIB
     Dosage: 400 MILLIGRAM, Q12H
     Route: 048
     Dates: start: 20250127
  5. MIANSERIN HYDROCHLORIDE [Suspect]
     Active Substance: MIANSERIN HYDROCHLORIDE
     Indication: Depression
     Dosage: 30 MILLIGRAM, QD
     Route: 048
     Dates: start: 20250125
  6. PACLITAXEL [Suspect]
     Active Substance: PACLITAXEL
     Indication: Lung neoplasm malignant
     Route: 042
     Dates: start: 20250117, end: 20250117
  7. ATOVAQUONE [Suspect]
     Active Substance: ATOVAQUONE
     Indication: Antifungal prophylaxis
     Dosage: 750 MILLIGRAM, Q12H
     Route: 048
     Dates: start: 20250122
  8. ATORVASTATIN [Concomitant]
     Active Substance: ATORVASTATIN
     Indication: Product used for unknown indication
     Route: 065
  9. ESCITALOPRAM [Concomitant]
     Active Substance: ESCITALOPRAM OXALATE
     Indication: Product used for unknown indication
     Route: 065
  10. LEVOTHYROXINE [Concomitant]
     Active Substance: LEVOTHYROXINE
     Indication: Product used for unknown indication
     Route: 065

REACTIONS (1)
  - Rash maculo-papular [Not Recovered/Not Resolved]

NARRATIVE: CASE EVENT DATE: 20250131
